FAERS Safety Report 4773126-0 (Version None)
Quarter: 2005Q3

REPORT INFORMATION
  Report Type: 
  Country: None (occurrence: None)
  Receive Date: 20050919
  Receipt Date: 20050906
  Transmission Date: 20060218
  Serious: Yes (Hospitalization)
  Sender: FDA-Public Use
  Company Number: FR-NOVOPROD-246801

PATIENT
  Age: 19 Year
  Sex: Male
  Weight: 78 kg

DRUGS (3)
  1. NORDITROPIN [Suspect]
     Indication: ILL-DEFINED DISORDER
  2. LEVOTHYROXINE SODIUM [Concomitant]
     Dosage: 50 UNK, UNK
     Route: 048
     Dates: start: 20011214
  3. PRAXILENE [Concomitant]
     Dosage: UNK, UNK
     Route: 048
     Dates: start: 20050428

REACTIONS (1)
  - INGUINAL HERNIA [None]
